FAERS Safety Report 6899850-1 (Version None)
Quarter: 2010Q3

REPORT INFORMATION
  Report Type: 
  Country: None (occurrence: None)
  Receive Date: 20100803
  Receipt Date: 20100720
  Transmission Date: 20110219
  Serious: Yes (Death, Hospitalization)
  Sender: FDA-Public Use
  Company Number: ES-BAYER-201033409GPV

PATIENT
  Age: 75 Year
  Sex: Male

DRUGS (3)
  1. SORAFENIB [Suspect]
     Indication: HEPATIC NEOPLASM MALIGNANT
     Route: 048
     Dates: start: 20090710
  2. SOMATOSTATIN [Concomitant]
     Dates: start: 20091008
  3. CEFTRIAXONE [Concomitant]
     Dates: start: 20091008

REACTIONS (1)
  - HEPATORENAL SYNDROME [None]
